FAERS Safety Report 4956303-5 (Version None)
Quarter: 2006Q1

REPORT INFORMATION
  Report Type: 
  Country: None (occurrence: None)
  Receive Date: 20060323
  Receipt Date: 20060309
  Transmission Date: 20060701
  Serious: Yes (Hospitalization)
  Sender: FDA-Public Use
  Company Number: GXKR2006IE01426

PATIENT
  Age: 75 Year
  Sex: Male

DRUGS (2)
  1. WARFARIN SODIUM [Suspect]
     Indication: ANTICOAGULANT THERAPY
  2. AMOXICILLIN+CLAVULANATE (NGX) (AMOXICILLIN, CLAVULANATE) [Suspect]
     Indication: RESPIRATORY TRACT INFECTION
     Dosage: 250MG/125MG, TID

REACTIONS (5)
  - ABDOMINAL PAIN LOWER [None]
  - DRUG INTERACTION [None]
  - INTERNATIONAL NORMALISED RATIO INCREASED [None]
  - RECTAL HAEMORRHAGE [None]
  - RESPIRATORY TRACT INFECTION [None]
